FAERS Safety Report 6160690-2 (Version None)
Quarter: 2009Q2

REPORT INFORMATION
  Report Type: 
  Country: None (occurrence: None)
  Receive Date: 20090416
  Receipt Date: 20090319
  Transmission Date: 20091009
  Serious: Yes (Hospitalization)
  Sender: FDA-Public Use
  Company Number: 230008K09GRC

PATIENT
  Sex: Female

DRUGS (2)
  1. REBIF [Suspect]
     Dates: end: 20090101
  2. MESULID (NIMESULIDE) [Concomitant]

REACTIONS (2)
  - HYPERTENSIVE CRISIS [None]
  - RENAL FAILURE [None]
